FAERS Safety Report 8463181-9 (Version None)
Quarter: 2012Q2

REPORT INFORMATION
  Report Type: 
  Country: None (occurrence: None)
  Receive Date: 20120625
  Receipt Date: 20120615
  Transmission Date: 20120825
  Serious: Yes (Other)
  Sender: FDA-Public Use
  Company Number: FR-VERTEX PHARMACEUTICALS INC.-000000000000000900

PATIENT
  Age: 48 Year
  Sex: Male

DRUGS (3)
  1. PEG-INTRON [Concomitant]
     Indication: HEPATITIS C
  2. INCIVO [Suspect]
     Indication: HEPATITIS C
     Dosage: DOSAGE FORM: TABLET
     Route: 065
  3. RIBAVIRIN [Concomitant]
     Indication: HEPATITIS C
     Route: 065

REACTIONS (5)
  - ECZEMA [None]
  - GENERAL PHYSICAL HEALTH DETERIORATION [None]
  - EOSINOPHILIA [None]
  - CHEST PAIN [None]
  - DYSPNOEA [None]
